FAERS Safety Report 23343264 (Version 2)
Quarter: 2024Q1

REPORT INFORMATION
  Report Type: Spontaneous
  Country: NL (occurrence: None)
  Receive Date: 20231227
  Receipt Date: 20240131
  Transmission Date: 20240410
  Serious: Yes (Other)
  Sender: FDA-Public Use
  Company Number: None

PATIENT
  Age: 48 Year
  Sex: Female
  Weight: 85 kg

DRUGS (3)
  1. OCRELIZUMAB [Suspect]
     Active Substance: OCRELIZUMAB
     Indication: Multiple sclerosis
     Dosage: 600 MG 1 X PER 6 MND
     Route: 065
     Dates: start: 20230115, end: 20231215
  2. PREGABALIN [Concomitant]
     Active Substance: PREGABALIN
     Dosage: CAPSULE, 75 MG (MILLIGRAM)
  3. DALFAMPRIDINE [Concomitant]
     Active Substance: DALFAMPRIDINE
     Dosage: TABLET MET GEREGULEERDE AFGIFTE, 10 MG (MILLIGRAM)

REACTIONS (1)
  - Breast cancer [Not Recovered/Not Resolved]
